FAERS Safety Report 23701470 (Version 1)
Quarter: 2024Q2

REPORT INFORMATION
  Report Type: Spontaneous
  Country: US (occurrence: None)
  Receive Date: 20240402
  Receipt Date: 20240402
  Transmission Date: 20240715
  Serious: Yes (Disabling)
  Sender: FDA-Public Use
  Company Number: None

PATIENT
  Age: 67 Year
  Sex: Male
  Weight: 73.35 kg

DRUGS (4)
  1. EZETIMIBE [Suspect]
     Active Substance: EZETIMIBE
     Indication: Coronary arterial stent insertion
     Dosage: 1 CAPSULE DAILY ORAL
     Route: 048
     Dates: start: 20230527, end: 20240303
  2. ALOPURINOL [Concomitant]
  3. Cholchicine [Concomitant]
  4. multivitamin [Concomitant]

REACTIONS (1)
  - Gout [None]

NARRATIVE: CASE EVENT DATE: 20240303
